FAERS Safety Report 14412915 (Version 1)
Quarter: 2018Q1

REPORT INFORMATION
  Report Type: Spontaneous
  Country: US (occurrence: US)
  Receive Date: 20180119
  Receipt Date: 20180119
  Transmission Date: 20180509
  Serious: Yes (Hospitalization)
  Sender: FDA-Public Use
  Company Number: None

PATIENT
  Age: 70 Year
  Sex: Female
  Weight: 105.7 kg

DRUGS (9)
  1. ASPIRIN. [Suspect]
     Active Substance: ASPIRIN
     Indication: PERIPHERAL ARTERIAL OCCLUSIVE DISEASE
     Dosage: CHRONIC
     Route: 048
  2. PERCOCET [Concomitant]
     Active Substance: ACETAMINOPHEN\OXYCODONE HYDROCHLORIDE
  3. FOLIC ACID. [Concomitant]
     Active Substance: FOLIC ACID
  4. ALBUTEROL. [Concomitant]
     Active Substance: ALBUTEROL
  5. SYNTHROID [Concomitant]
     Active Substance: LEVOTHYROXINE SODIUM
  6. LIPITOR [Concomitant]
     Active Substance: ATORVASTATIN CALCIUM
  7. HUMALOG [Concomitant]
     Active Substance: INSULIN LISPRO
  8. PRILOSEC [Concomitant]
     Active Substance: OMEPRAZOLE MAGNESIUM
  9. CHRONULAC [Concomitant]
     Active Substance: LACTULOSE

REACTIONS (1)
  - Haemorrhoids [None]

NARRATIVE: CASE EVENT DATE: 20170809
